FAERS Safety Report 15193266 (Version 1)
Quarter: 2018Q3

REPORT INFORMATION
  Report Type: Spontaneous
  Country: US (occurrence: US)
  Receive Date: 20180725
  Receipt Date: 20180725
  Transmission Date: 20181010
  Serious: Yes (Hospitalization)
  Sender: FDA-Public Use
  Company Number: US-ROCHE-2158083

PATIENT
  Age: 38 Year
  Sex: Male
  Weight: 97.45 kg

DRUGS (1)
  1. OCREVUS [Suspect]
     Active Substance: OCRELIZUMAB
     Indication: MULTIPLE SCLEROSIS
     Route: 065
     Dates: start: 20180117

REACTIONS (3)
  - Sepsis [Recovered/Resolved]
  - Hypophagia [Unknown]
  - Micturition urgency [Unknown]

NARRATIVE: CASE EVENT DATE: 20180704
